FAERS Safety Report 21049520 (Version 3)
Quarter: 2025Q3

REPORT INFORMATION
  Report Type: Spontaneous
  Country: EU (occurrence: EU)
  Receive Date: 20220706
  Receipt Date: 20250819
  Transmission Date: 20251020
  Serious: Yes (Life-Threatening, Hospitalization, Other)
  Sender: PFIZER
  Company Number: EU-MLMSERVICE-20220623-3636232-1

PATIENT
  Age: 10 Year
  Sex: Female
  Weight: 26 kg

DRUGS (4)
  1. METHOTREXATE SODIUM [Suspect]
     Active Substance: METHOTREXATE SODIUM
     Indication: Acute lymphocytic leukaemia
     Route: 037
  2. HYDROCORTISONE SODIUM SUCCINATE [Suspect]
     Active Substance: HYDROCORTISONE SODIUM SUCCINATE
     Indication: Acute lymphocytic leukaemia
     Route: 037
  3. CYTARABINE [Suspect]
     Active Substance: CYTARABINE
     Indication: Acute lymphocytic leukaemia
     Route: 037
  4. PEG/L-ASPARAGINASE [Suspect]
     Active Substance: PEGASPARGASE
     Indication: Acute lymphocytic leukaemia
     Route: 030

REACTIONS (7)
  - Myelosuppression [Recovering/Resolving]
  - Partial seizures [Recovering/Resolving]
  - Superior sagittal sinus thrombosis [Recovering/Resolving]
  - Cerebral haemorrhage [Recovering/Resolving]
  - Coagulation test abnormal [Recovering/Resolving]
  - Intracranial hypotension [Recovering/Resolving]
  - Off label use [Unknown]
